FAERS Safety Report 5470106-7 (Version None)
Quarter: 2007Q3

REPORT INFORMATION
  Report Type: 
  Country: None (occurrence: None)
  Receive Date: 20070927
  Receipt Date: 20060905
  Transmission Date: 20080115
  Serious: No
  Sender: FDA-Public Use
  Company Number: US-AMGEN-KDL192410

PATIENT
  Sex: Male
  Weight: 72.4 kg

DRUGS (4)
  1. NEUPOGEN [Suspect]
     Indication: DRUG USE FOR UNKNOWN INDICATION
     Route: 058
     Dates: start: 20050901, end: 20060904
  2. PROCRIT [Concomitant]
     Route: 065
  3. FOLIC ACID [Concomitant]
     Route: 065
  4. VITAMIN CAP [Concomitant]
     Route: 065

REACTIONS (5)
  - BONE PAIN [None]
  - DIARRHOEA [None]
  - DIZZINESS [None]
  - HYPERHIDROSIS [None]
  - NAUSEA [None]
